FAERS Safety Report 9030433 (Version 2)
Quarter: 2013Q2

REPORT INFORMATION
  Report Type: Report from Study
  Country: US (occurrence: US)
  Receive Date: 20130122
  Receipt Date: 20130502
  Transmission Date: 20140414
  Serious: Yes (Other)
  Sender: FDA-Public Use
  Company Number: US-BAYER-2013-005180

PATIENT
  Age: 74 Year
  Sex: Female

DRUGS (1)
  1. STIVARGA [Suspect]
     Indication: COLON CANCER
     Dosage: 160 MG, QD (40 MG, 4 TABLETS)
     Route: 048
     Dates: start: 20130109, end: 20130111

REACTIONS (3)
  - Presyncope [Recovering/Resolving]
  - Epistaxis [Recovering/Resolving]
  - Back pain [Not Recovered/Not Resolved]
